FAERS Safety Report 8771260 (Version 2)
Quarter: 2012Q4

REPORT INFORMATION
  Report Type: 
  Country: US (occurrence: US)
  Receive Date: 20120905
  Receipt Date: 20120914
  Transmission Date: 20130627
  Serious: Yes (Hospitalization)
  Sender: FDA-Public Use
  Company Number: US-BAXTER-2012BAX015781

PATIENT
  Age: 55 Year
  Sex: Male

DRUGS (4)
  1. DIANEAL LOW CALCIUM [Suspect]
     Indication: PERITONEAL DIALYSIS
     Route: 033
  2. DIANEAL LOW CALCIUM [Suspect]
     Indication: PERITONEAL DIALYSIS
     Route: 033
  3. TRAZODONE [Suspect]
     Indication: INSOMNIA
     Route: 048
     Dates: start: 20120820
  4. TEMAZEPAM [Suspect]
     Indication: INSOMNIA
     Route: 048

REACTIONS (4)
  - Hallucination [Recovered/Resolved]
  - Blood glucose increased [Recovering/Resolving]
  - Abnormal behaviour [Recovering/Resolving]
  - Sleep disorder [Recovering/Resolving]
